FAERS Safety Report 5751583-0 (Version None)
Quarter: 2008Q2

REPORT INFORMATION
  Report Type: 
  Country: None (occurrence: None)
  Receive Date: 20080528
  Receipt Date: 20080519
  Transmission Date: 20081010
  Serious: Yes (Hospitalization)
  Sender: FDA-Public Use
  Company Number: PHRM2008FR01535

PATIENT
  Sex: Female

DRUGS (9)
  1. TEGRETOL [Suspect]
     Dosage: 1000 MG, QD
     Route: 048
     Dates: end: 20080407
  2. TERALITHE [Interacting]
     Dosage: 1000 MG, QD
     Route: 048
  3. ATHYMIL [Concomitant]
     Dosage: 1 DF, QD
  4. IMOVANE [Concomitant]
     Dosage: 1 DF, QD
  5. LERCAN [Concomitant]
     Dosage: 10 MG, QD
  6. MOTILIUM [Concomitant]
     Dosage: 3 DF/DAY
  7. PARKINANE [Concomitant]
     Dosage: 15 DRP, QD
  8. XANAX [Concomitant]
     Dosage: 3 DF, QD
  9. ZYPREXA [Concomitant]
     Dosage: 5 MG, QD

REACTIONS (12)
  - ACCIDENTAL OVERDOSE [None]
  - ANTICONVULSANT DRUG LEVEL ABOVE THERAPEUTIC [None]
  - ANTIPSYCHOTIC DRUG LEVEL BELOW THERAPEUTIC [None]
  - CEREBELLAR SYNDROME [None]
  - COMPUTERISED TOMOGRAM ABNORMAL [None]
  - DRUG DISPENSING ERROR [None]
  - DYSARTHRIA [None]
  - DYSPNOEA [None]
  - HEADACHE [None]
  - HYPERTENSION [None]
  - NAUSEA [None]
  - VOMITING [None]
